FAERS Safety Report 5509507-7 (Version None)
Quarter: 2007Q4

REPORT INFORMATION
  Report Type: 
  Country: None (occurrence: None)
  Receive Date: 20071107
  Receipt Date: 20071030
  Transmission Date: 20080405
  Serious: Yes (Hospitalization, Other)
  Sender: FDA-Public Use
  Company Number: US-PFIZER INC-2007091612

PATIENT
  Sex: Male
  Weight: 83.9 kg

DRUGS (5)
  1. NICOTINE [Suspect]
     Indication: SMOKING CESSATION THERAPY
  2. CHANTIX [Suspect]
     Indication: SMOKING CESSATION THERAPY
  3. COUMADIN [Concomitant]
     Indication: ANTICOAGULANT THERAPY
  4. OMEPRAZOLE [Concomitant]
  5. ACETYLSALICYLIC ACID SRT [Concomitant]

REACTIONS (3)
  - DRUG INEFFECTIVE [None]
  - HYPERTENSION [None]
  - PERIPHERAL VASCULAR DISORDER [None]
